FAERS Safety Report 10237736 (Version 2)
Quarter: 2014Q2

REPORT INFORMATION
  Report Type: Spontaneous
  Country: JP (occurrence: JP)
  Receive Date: 20140616
  Receipt Date: 20140624
  Transmission Date: 20141212
  Serious: Yes (Other)
  Sender: FDA-Public Use
  Company Number: JP-009507513-1406JPN005980

PATIENT
  Age: 78 Year
  Sex: Male

DRUGS (1)
  1. REFLEX [Suspect]
     Dosage: DAILY 15 MG
     Route: 048
     Dates: start: 201209, end: 201211

REACTIONS (1)
  - Drug eruption [Unknown]
